FAERS Safety Report 20682613 (Version 3)
Quarter: 2022Q2

REPORT INFORMATION
  Report Type: Spontaneous
  Country: BR (occurrence: BR)
  Receive Date: 20220407
  Receipt Date: 20220504
  Transmission Date: 20220721
  Serious: Yes (Other)
  Sender: FDA-Public Use
  Company Number: BR-NOVARTISPH-NVSC2022BR075723

PATIENT
  Sex: Female

DRUGS (1)
  1. ENTRESTO [Suspect]
     Active Substance: SACUBITRIL\VALSARTAN
     Indication: Cardiac failure congestive
     Dosage: 1 DOSAGE FORM, Q12H
     Route: 048

REACTIONS (8)
  - Mitral valve incompetence [Unknown]
  - Ventricular hypokinesia [Unknown]
  - Congestive cardiomyopathy [Unknown]
  - Illness [Unknown]
  - Left ventricular dysfunction [Unknown]
  - Left ventricular hypertrophy [Unknown]
  - Bundle branch block left [Unknown]
  - General physical health deterioration [Unknown]
